FAERS Safety Report 6862560-0 (Version None)
Quarter: 2010Q3

REPORT INFORMATION
  Report Type: 
  Country: None (occurrence: None)
  Receive Date: 20100721
  Receipt Date: 20100706
  Transmission Date: 20110219
  Serious: Yes (Other)
  Sender: FDA-Public Use
  Company Number: TN-PAR PHARMACEUTICAL, INC-2010SCPR000377

PATIENT
  Age: 25 Year
  Sex: Female

DRUGS (1)
  1. VALPROIC ACID [Suspect]
     Indication: EPILEPSY
     Dosage: 1500 MG, TID
     Route: 065

REACTIONS (3)
  - AMENORRHOEA [None]
  - HIRSUTISM [None]
  - POLYCYSTIC OVARIES [None]
